FAERS Safety Report 21527820 (Version 3)
Quarter: 2022Q4

REPORT INFORMATION
  Report Type: Report from Study
  Country: CN (occurrence: CN)
  Receive Date: 20221031
  Receipt Date: 20221114
  Transmission Date: 20230113
  Serious: Yes (Hospitalization)
  Sender: FDA-Public Use
  Company Number: CN-JNJFOC-20221049184

PATIENT
  Age: 30 Year
  Sex: Male
  Weight: 49.5 kg

DRUGS (2)
  1. GUSELKUMAB [Suspect]
     Active Substance: GUSELKUMAB
     Indication: Crohn^s disease
     Dosage: SUBCUTANEOUS AND INTRAVENOUS
     Route: 058
     Dates: start: 20211222
  2. GUSELKUMAB [Suspect]
     Active Substance: GUSELKUMAB
     Dosage: SUBCUTANEOUS AND INTRAVENOUS
     Route: 042
     Dates: start: 20211222

REACTIONS (1)
  - Small intestinal perforation [Recovering/Resolving]

NARRATIVE: CASE EVENT DATE: 20221020
